FAERS Safety Report 12326447 (Version 1)
Quarter: 2016Q2

REPORT INFORMATION
  Report Type: Spontaneous
  Country: US (occurrence: None)
  Receive Date: 20160502
  Receipt Date: 20160502
  Transmission Date: 20160815
  Serious: No
  Sender: FDA-Public Use
  Company Number: None

PATIENT

DRUGS (2)
  1. DOXAZOSIN, 1MG ACCORD HEALTHCARE [Suspect]
     Active Substance: DOXAZOSIN MESYLATE
  2. DOXAZOSIN, 2MG ACCORD HEALTHCARE [Suspect]
     Active Substance: DOXAZOSIN MESYLATE

REACTIONS (1)
  - Product packaging confusion [None]

NARRATIVE: CASE EVENT DATE: 20160430
